FAERS Safety Report 5006096-0 (Version None)
Quarter: 2006Q2

REPORT INFORMATION
  Report Type: 
  Country: None (occurrence: None)
  Receive Date: 20060518
  Receipt Date: 20060502
  Transmission Date: 20061013
  Serious: Yes (Other)
  Sender: FDA-Public Use
  Company Number: GB-MERCK-0605GBR00048

PATIENT
  Age: 66 Year
  Sex: Male
  Weight: 95 kg

DRUGS (17)
  1. VIOXX [Suspect]
     Indication: ARTHRITIS
     Route: 048
     Dates: start: 19990101, end: 20031101
  2. ENBREL [Concomitant]
     Route: 065
     Dates: start: 20010101
  3. METHOTREXATE [Concomitant]
     Indication: ARTHRITIS
     Route: 065
     Dates: start: 19760101
  4. FOLIC ACID [Concomitant]
     Indication: CARDIAC DISORDER
     Route: 065
     Dates: start: 20010101
  5. ALLOPURINOL [Concomitant]
     Indication: GOUT
     Route: 065
  6. ATENOLOL AND CHLORTHALIDONE [Concomitant]
     Route: 065
  7. BENAZEPRIL HYDROCHLORIDE [Concomitant]
     Indication: HYPERTENSION
     Route: 065
     Dates: start: 19980101
  8. ATENOLOL AND CHLORTHALIDONE [Concomitant]
     Route: 065
  9. LISINOPRIL [Concomitant]
     Indication: HYPERTENSION
     Route: 065
  10. GLYBURIDE [Concomitant]
     Indication: DIABETES MELLITUS
     Route: 065
  11. AMLODIPINE BESYLATE [Concomitant]
     Route: 065
  12. TACALCITOL [Concomitant]
     Indication: RASH
     Route: 065
  13. BETAMETHASONE DIPROPIONATE AND SALICYLIC ACID [Concomitant]
     Indication: RASH
     Route: 065
  14. GLUCOSAMINE [Concomitant]
     Route: 065
  15. LANSOPRAZOLE [Concomitant]
     Route: 065
  16. ASPIRIN [Concomitant]
     Indication: CARDIOVASCULAR EVENT PROPHYLAXIS
     Route: 065
  17. ATORVASTATIN CALCIUM [Concomitant]
     Indication: BLOOD CHOLESTEROL INCREASED
     Route: 065
     Dates: start: 20030101

REACTIONS (1)
  - MYOCARDIAL INFARCTION [None]
